FAERS Safety Report 7133090-6 (Version None)
Quarter: 2010Q4

REPORT INFORMATION
  Report Type: 
  Country: None (occurrence: None)
  Receive Date: 20101202
  Receipt Date: 20101124
  Transmission Date: 20110411
  Serious: Yes (Other)
  Sender: FDA-Public Use
  Company Number: B0686919A

PATIENT
  Age: 36 Year
  Sex: Female

DRUGS (1)
  1. ZYBAN [Suspect]
     Dosage: 150MG TWICE PER DAY
     Route: 048
     Dates: start: 20100712, end: 20100803

REACTIONS (5)
  - DYSPNOEA [None]
  - ECZEMA [None]
  - HYPERSENSITIVITY [None]
  - PRURITUS [None]
  - TINNITUS [None]
